FAERS Safety Report 10052087 (Version 2)
Quarter: 2014Q2

REPORT INFORMATION
  Report Type: Spontaneous
  Country: CA (occurrence: CA)
  Receive Date: 20140402
  Receipt Date: 20140414
  Transmission Date: 20141212
  Serious: Yes (Hospitalization)
  Sender: FDA-Public Use
  Company Number: CA-ROCHE-1375617

PATIENT
  Sex: Male

DRUGS (6)
  1. XOLAIR [Suspect]
     Indication: ASTHMA
     Route: 058
     Dates: start: 20100405
  2. ADVAIR [Concomitant]
  3. AERIUS [Concomitant]
  4. OMNARIS [Concomitant]
  5. VENTOLINE [Concomitant]
  6. PROZAC [Concomitant]

REACTIONS (4)
  - Nephrolithiasis [Unknown]
  - Bronchitis [Unknown]
  - Malaise [Unknown]
  - Cough [Unknown]
